FAERS Safety Report 25487848 (Version 1)
Quarter: 2025Q2

REPORT INFORMATION
  Report Type: Spontaneous
  Country: CO (occurrence: CO)
  Receive Date: 20250627
  Receipt Date: 20250627
  Transmission Date: 20250716
  Serious: Yes (Hospitalization)
  Sender: REGENERON
  Company Number: CO-BAYER-2025A083117

PATIENT
  Sex: Male

DRUGS (1)
  1. EYLEA [Suspect]
     Active Substance: AFLIBERCEPT
     Indication: Macular degeneration
     Dosage: 40 MG, Q1MON, SOLUTION FOR INJECTION, 40 MG/ML
     Route: 031

REACTIONS (1)
  - Fluid retention [Recovered/Resolved]
